FAERS Safety Report 8770292 (Version 7)
Quarter: 2014Q1

REPORT INFORMATION
  Report Type: Report from Study
  Country: CA (occurrence: CA)
  Receive Date: 20120904
  Receipt Date: 20140311
  Transmission Date: 20141002
  Serious: Yes (Death, Hospitalization, Other)
  Sender: FDA-Public Use
  Company Number: CA-ROCHE-1113543

PATIENT
  Age: 73 Year
  Sex: Male

DRUGS (12)
  1. RITUXAN [Suspect]
     Indication: RHEUMATOID ARTHRITIS
     Route: 042
     Dates: start: 201203, end: 20130403
  2. ARAVA [Concomitant]
  3. COUMADIN [Concomitant]
  4. ACTONEL [Concomitant]
  5. TYLENOL [Concomitant]
  6. DIPHENHYDRAMINE HCL [Concomitant]
     Indication: PREMEDICATION
     Route: 048
     Dates: start: 20120813, end: 20120813
  7. ACETAMINOPHEN [Concomitant]
     Indication: PREMEDICATION
     Route: 048
     Dates: start: 20120813, end: 20120813
  8. PREDNISONE [Concomitant]
  9. METHYLPREDNISOLONE [Concomitant]
     Indication: PREMEDICATION
     Route: 042
     Dates: start: 20120813, end: 20120813
  10. BISOPROLOL [Concomitant]
     Route: 065
  11. DIOVAN [Concomitant]
  12. NEXIUM [Concomitant]

REACTIONS (4)
  - Acute myeloid leukaemia [Fatal]
  - Polyp [Unknown]
  - Neoplasm malignant [Unknown]
  - Wound [Recovered/Resolved]
